FAERS Safety Report 4274961-8 (Version None)
Quarter: 2004Q1

REPORT INFORMATION
  Report Type: 
  Country: None (occurrence: None)
  Receive Date: 20040120
  Receipt Date: 20040105
  Transmission Date: 20041129
  Serious: Yes (Life-Threatening)
  Sender: FDA-Public Use
  Company Number: FLUV00304000029

PATIENT
  Age: 43 Year
  Sex: Female
  Weight: 170 kg

DRUGS (2)
  1. LUVOX [Suspect]
     Indication: OBSESSIVE-COMPULSIVE DISORDER
     Dosage: 200 MG DAILY PO, UNK DAILY PO
     Route: 048
     Dates: start: 20010801, end: 20031101
  2. LUVOX [Suspect]
     Indication: OBSESSIVE-COMPULSIVE DISORDER
     Dosage: 200 MG DAILY PO, UNK DAILY PO
     Route: 048
     Dates: start: 20031101

REACTIONS (1)
  - CEREBRAL ARTERIOVENOUS MALFORMATION HAEMORRHAGIC [None]
